FAERS Safety Report 9284075 (Version 2)
Quarter: 2013Q2

REPORT INFORMATION
  Report Type: Spontaneous
  Country: DE (occurrence: DE)
  Receive Date: 20130510
  Receipt Date: 20130529
  Transmission Date: 20140414
  Serious: Yes (Hospitalization, Other)
  Sender: FDA-Public Use
  Company Number: DE-AMGEN-DEUSP2013010224

PATIENT
  Age: 65 Year
  Sex: Female

DRUGS (9)
  1. ENBREL [Suspect]
     Indication: RHEUMATOID ARTHRITIS
     Dosage: 50 MG, WEEKLY
     Dates: start: 20110128, end: 20130326
  2. MTX                                /00113801/ [Concomitant]
     Dosage: 20 MG, UNK
     Route: 058
  3. DECORTIN [Concomitant]
     Dosage: 5 MG, UNK
  4. L-THYROXIN [Concomitant]
     Dosage: 25 UNK, UNK
  5. BISOPROLOL [Concomitant]
     Dosage: 10 MG, UNK
  6. IBUPROFEN [Concomitant]
     Dosage: 800 MG 1X/DAY AND AS NEEDED
  7. OPIPRAMOL [Concomitant]
     Dosage: 1-0-1 AND AS NEEDED
  8. IMIGRAN                            /01044802/ [Concomitant]
     Indication: MIGRAINE
     Dosage: 50 UNK, UNK
  9. OXYCODON HCL CT [Concomitant]
     Dosage: 20 MG, UNK

REACTIONS (5)
  - Cataract [Unknown]
  - Eye disorder [Unknown]
  - Chills [Unknown]
  - Pyrexia [Unknown]
  - Drug effect decreased [Unknown]
